FAERS Safety Report 6528911-1 (Version None)
Quarter: 2009Q4

REPORT INFORMATION
  Report Type: 
  Country: None (occurrence: None)
  Receive Date: 20091224
  Receipt Date: 20091209
  Transmission Date: 20100525
  Serious: Yes (Death, Hospitalization, Other)
  Sender: FDA-Public Use
  Company Number: AUR-APL-2009-01633

PATIENT
  Age: 84 Year
  Sex: Female

DRUGS (4)
  1. SIMVASTATIN [Suspect]
     Indication: HYPERLIPIDAEMIA
     Dosage: 10MG - DAILY - UNKNOWN
     Route: 065
     Dates: start: 20091020, end: 20091026
  2. CITALOPRAM [Suspect]
     Indication: DEPRESSION
     Dosage: 10 - DAILY - UNKNOWN
     Route: 065
  3. FRAGMIN [Suspect]
     Indication: THROMBOSIS PROPHYLAXIS
     Dosage: 5000 IU - DAILY- SUBCUTANEOUS
     Route: 058
     Dates: start: 20091020, end: 20091023
  4. ACETYLSALICYLIC ACID TABLET (TROMBYL) [Suspect]
     Dosage: 75 MG - DAILY - ORAL
     Route: 048
     Dates: start: 20091020, end: 20091026

REACTIONS (2)
  - EPISTAXIS [None]
  - GASTROINTESTINAL HAEMORRHAGE [None]
